FAERS Safety Report 17540623 (Version 1)
Quarter: 2020Q1

REPORT INFORMATION
  Report Type: Report from Study
  Country: US (occurrence: US)
  Receive Date: 20200313
  Receipt Date: 20200313
  Transmission Date: 20200409
  Serious: Yes (Other)
  Sender: FDA-Public Use
  Company Number: US-AGIOS-2002US01691

PATIENT

DRUGS (1)
  1. TIBSOVO [Suspect]
     Active Substance: IVOSIDENIB
     Indication: BRAIN NEOPLASM MALIGNANT
     Dosage: 250 MILLIGRAM, 2 TABLETS (500 MG) DAILY
     Dates: start: 20200204

REACTIONS (7)
  - Neoplasm recurrence [Unknown]
  - Malnutrition [Unknown]
  - Blood triglycerides increased [Unknown]
  - White blood cell count decreased [Unknown]
  - Off label use [Unknown]
  - Neoplasm progression [Unknown]
  - Neutrophil count decreased [Unknown]

NARRATIVE: CASE EVENT DATE: 20200212
